FAERS Safety Report 14345419 (Version 1)
Quarter: 2018Q1

REPORT INFORMATION
  Report Type: Spontaneous
  Country: US (occurrence: US)
  Receive Date: 20180103
  Receipt Date: 20180103
  Transmission Date: 20180509
  Serious: Yes (Hospitalization)
  Sender: FDA-Public Use
  Company Number: US-ASTELLAS-2017US050360

PATIENT
  Sex: Male

DRUGS (1)
  1. XTANDI [Suspect]
     Active Substance: ENZALUTAMIDE
     Indication: PRODUCT USED FOR UNKNOWN INDICATION
     Dosage: 80 MG (2 40MG CAPSULES), ONCE DAILY
     Route: 048

REACTIONS (4)
  - Fatigue [Recovered/Resolved]
  - Heart rate increased [Recovered/Resolved]
  - Nausea [Recovered/Resolved]
  - Underdose [Unknown]
